FAERS Safety Report 7646529-4 (Version None)
Quarter: 2011Q3

REPORT INFORMATION
  Report Type: 
  Country: None (occurrence: None)
  Receive Date: 20110725
  Receipt Date: 20110707
  Transmission Date: 20111222
  Serious: Yes (Other)
  Sender: FDA-Public Use
  Company Number: JHP201100354

PATIENT
  Age: 10 Year
  Sex: Male

DRUGS (10)
  1. SOLU-MEDROL [Concomitant]
  2. DEXTROSE 5% [Concomitant]
  3. MANNITOL [Concomitant]
  4. BRETYLIUM (BRETYLIUM) [Concomitant]
  5. ZOFRAN [Concomitant]
  6. INSULIN (INSULIN) [Concomitant]
  7. DANTROLENE SODIUM [Suspect]
     Indication: HYPERTHERMIA MALIGNANT
     Dosage: 156 MG, TOTAL, INTRAVENOUS
     Route: 042
  8. BICARBONATE (SODIUM BICARBONATE) [Concomitant]
  9. HALOTHANE [Concomitant]
  10. NITROUS OXIDE W/ OXYGEN [Concomitant]

REACTIONS (3)
  - MUSCULAR WEAKNESS [None]
  - RESPIRATORY FAILURE [None]
  - ALTERED STATE OF CONSCIOUSNESS [None]
